FAERS Safety Report 14918011 (Version 1)
Quarter: 2018Q2

REPORT INFORMATION
  Report Type: Spontaneous
  Country: GB (occurrence: GB)
  Receive Date: 20180521
  Receipt Date: 20180521
  Transmission Date: 20180711
  Serious: Yes (Disabling, Congenital Anomaly, Other)
  Sender: FDA-Public Use
  Company Number: GB-TEVA-2018-GB-894279

PATIENT
  Sex: Male

DRUGS (5)
  1. GENERICS UK CARBAMAZEPINE [Suspect]
     Active Substance: CARBAMAZEPINE
     Dosage: 900 MILLIGRAM DAILY;
     Route: 063
     Dates: start: 1999
  2. LAMOTRIGINE. [Suspect]
     Active Substance: LAMOTRIGINE
     Dosage: 300 MILLIGRAM DAILY;
     Route: 063
     Dates: start: 1999
  3. LAMOTRIGINE. [Suspect]
     Active Substance: LAMOTRIGINE
     Indication: EPILEPSY
     Dosage: 300 MILLIGRAM DAILY;
     Route: 064
     Dates: start: 1999
  4. GENERICS UK CARBAMAZEPINE [Suspect]
     Active Substance: CARBAMAZEPINE
     Indication: EPILEPSY
     Dosage: 900 MILLIGRAM DAILY;
     Route: 064
     Dates: start: 1999
  5. FOLIC ACID. [Concomitant]
     Active Substance: FOLIC ACID
     Route: 064

REACTIONS (23)
  - Sensory processing disorder [Not Recovered/Not Resolved]
  - Motor dysfunction [Unknown]
  - Gastrointestinal motility disorder [Unknown]
  - Visual impairment [Unknown]
  - Bronchiolitis [Unknown]
  - Hypermobility syndrome [Unknown]
  - Renal disorder [Unknown]
  - Speech disorder [Unknown]
  - Incontinence [Unknown]
  - Syndactyly [Unknown]
  - Language disorder [Unknown]
  - Ear malformation [Unknown]
  - Hyperacusis [Unknown]
  - Prominent epicanthal folds [Unknown]
  - Tourette^s disorder [Unknown]
  - Strabismus [Unknown]
  - Memory impairment [Not Recovered/Not Resolved]
  - Disturbance in attention [Unknown]
  - Dyspraxia [Unknown]
  - Dysmorphism [Unknown]
  - Attention deficit/hyperactivity disorder [Not Recovered/Not Resolved]
  - Autism spectrum disorder [Unknown]
  - Asthma [Unknown]

NARRATIVE: CASE EVENT DATE: 20020419
